FAERS Safety Report 20379382 (Version 1)
Quarter: 2022Q1

REPORT INFORMATION
  Report Type: Spontaneous
  Country: US (occurrence: None)
  Receive Date: 20220126
  Receipt Date: 20220126
  Transmission Date: 20220423
  Serious: Yes (Hospitalization)
  Sender: FDA-Public Use
  Company Number: None

PATIENT
  Age: 48 Year
  Sex: Male
  Weight: 118 kg

DRUGS (16)
  1. CASIRIVIMAB [Suspect]
     Active Substance: CASIRIVIMAB
     Indication: COVID-19
     Dosage: FREQUENCY : ONCE;?
     Route: 042
     Dates: start: 20211018, end: 20211018
  2. IMDEVIMAB [Suspect]
     Active Substance: IMDEVIMAB
     Indication: COVID-19
     Dosage: FREQUENCY : ONCE;?
     Route: 042
     Dates: start: 20211018, end: 20211018
  3. AZITHROMYCIN [Concomitant]
     Active Substance: AZITHROMYCIN
     Dates: start: 20211021, end: 20211023
  4. CEFTRIAXONE [Concomitant]
     Active Substance: CEFTRIAXONE
     Dates: start: 20211021, end: 20211023
  5. DEXAMETHASONE [Concomitant]
     Active Substance: DEXAMETHASONE
     Dates: start: 20211021, end: 20211023
  6. REMDESIVIR [Concomitant]
     Active Substance: REMDESIVIR
     Dates: start: 20211021, end: 20211023
  7. COMBIVENT [Concomitant]
     Active Substance: ALBUTEROL SULFATE\IPRATROPIUM BROMIDE
     Dates: start: 20211021, end: 20211023
  8. Asorbic Acid [Concomitant]
     Dates: start: 20211021, end: 20211023
  9. CHOLECALCIFEROL [Concomitant]
     Active Substance: CHOLECALCIFEROL
     Dates: start: 20211021, end: 20211023
  10. ZINC [Concomitant]
     Active Substance: ZINC
     Dates: start: 20211021, end: 20211023
  11. ENOXAPARIN [Concomitant]
     Active Substance: ENOXAPARIN
     Dates: start: 20211021, end: 20211023
  12. FUROSEMIDE [Concomitant]
     Active Substance: FUROSEMIDE
     Dates: start: 20211021, end: 20211022
  13. AZITHROMYCIN [Concomitant]
     Active Substance: AZITHROMYCIN
     Dates: start: 20211024, end: 20211025
  14. ALBUTEROL [Concomitant]
     Active Substance: ALBUTEROL
     Dates: start: 20211024
  15. CEFPODOXIME [Concomitant]
     Active Substance: CEFPODOXIME
     Dates: start: 20211024, end: 20211025
  16. DEXAMETHASONE [Concomitant]
     Active Substance: DEXAMETHASONE
     Dates: start: 20211024, end: 20211029

REACTIONS (4)
  - Dyspnoea [None]
  - Acute respiratory failure [None]
  - COVID-19 pneumonia [None]
  - Blood pressure abnormal [None]

NARRATIVE: CASE EVENT DATE: 20211021
